FAERS Safety Report 6380912-2 (Version None)
Quarter: 2009Q3

REPORT INFORMATION
  Report Type: 
  Country: None (occurrence: None)
  Receive Date: 20090925
  Receipt Date: 20090925
  Transmission Date: 20100115
  Serious: Yes (Death)
  Sender: FDA-Public Use
  Company Number: None

PATIENT
  Age: 73 Year
  Sex: Male
  Weight: 64.8644 kg

DRUGS (2)
  1. SUTENT [Suspect]
     Indication: OESOPHAGEAL CARCINOMA
     Dosage: 37.5MG PO DAILY : ORAL
     Route: 048
     Dates: start: 20090903, end: 20090911
  2. TAXOL [Suspect]
     Indication: OESOPHAGEAL CARCINOMA
     Dosage: 165 MG IV DAY 1, 8, 15: INTRAVENEOUS
     Route: 042
     Dates: start: 20090903, end: 20090910

REACTIONS (4)
  - BODY TEMPERATURE DECREASED [None]
  - DYSPHAGIA [None]
  - OESOPHAGOBRONCHIAL FISTULA [None]
  - PNEUMONIA [None]
